FAERS Safety Report 4947131-5 (Version None)
Quarter: 2006Q1

REPORT INFORMATION
  Report Type: 
  Country: None (occurrence: None)
  Receive Date: 20060314
  Receipt Date: 20060221
  Transmission Date: 20060701
  Serious: Yes (Hospitalization)
  Sender: FDA-Public Use
  Company Number: US200602005202

PATIENT
  Age: 80 Year
  Sex: Female

DRUGS (2)
  1. FORTEO [Suspect]
     Indication: OSTEOPOROSIS
     Dates: start: 20051001
  2. FORTEO [Concomitant]

REACTIONS (8)
  - FALL [None]
  - LOWER LIMB FRACTURE [None]
  - MEDICAL DEVICE COMPLICATION [None]
  - PELVIC FRACTURE [None]
  - PHARMACEUTICAL PRODUCT COMPLAINT [None]
  - PNEUMONIA [None]
  - ROAD TRAFFIC ACCIDENT [None]
  - WHEELCHAIR USER [None]
